FAERS Safety Report 16374038 (Version 1)
Quarter: 2019Q2

REPORT INFORMATION
  Report Type: Spontaneous
  Country: DE (occurrence: DE)
  Receive Date: 20190530
  Receipt Date: 20190530
  Transmission Date: 20190711
  Serious: Yes (Other)
  Sender: FDA-Public Use
  Company Number: DE-MYLANLABS-2019M1049498

PATIENT
  Age: 24 Year
  Sex: Female
  Weight: 70 kg

DRUGS (1)
  1. LEPONEX [Suspect]
     Active Substance: CLOZAPINE
     Indication: SCHIZOPHRENIA
     Dosage: 500 MILLIGRAM, QD
     Route: 048
     Dates: start: 20001223

REACTIONS (1)
  - Oculogyric crisis [Not Recovered/Not Resolved]

NARRATIVE: CASE EVENT DATE: 20001231
